FAERS Safety Report 14427613 (Version 1)
Quarter: 2018Q1

REPORT INFORMATION
  Report Type: Spontaneous
  Country: ES (occurrence: ES)
  Receive Date: 20180123
  Receipt Date: 20180123
  Transmission Date: 20180509
  Serious: Yes (Death, Other)
  Sender: FDA-Public Use
  Company Number: ES-ALLERGAN-1803247US

PATIENT
  Age: 72 Year
  Sex: Male

DRUGS (1)
  1. MESALAZINE UNK [Suspect]
     Active Substance: MESALAMINE
     Indication: COLITIS ULCERATIVE
     Dosage: 4 G, QD
     Route: 065
     Dates: start: 201301

REACTIONS (3)
  - Off label use [Unknown]
  - Death [Fatal]
  - Metastatic squamous cell carcinoma [Unknown]

NARRATIVE: CASE EVENT DATE: 201310
